FAERS Safety Report 19515173 (Version 1)
Quarter: 2021Q3

REPORT INFORMATION
  Report Type: Spontaneous
  Country: US (occurrence: US)
  Receive Date: 20210709
  Receipt Date: 20210709
  Transmission Date: 20211014
  Serious: Yes (Other)
  Sender: FDA-Public Use
  Company Number: US-SA-2021SA226648

PATIENT
  Age: 54 Year
  Sex: Male
  Weight: 122 kg

DRUGS (6)
  1. ELIQUIS [Suspect]
     Active Substance: APIXABAN
     Dosage: 5 MG, BID
  2. TOLCYLEN ANTIFUNGAL SOLUTION [Concomitant]
     Active Substance: TOLNAFTATE
  3. ELIQUIS [Suspect]
     Active Substance: APIXABAN
     Indication: THROMBOSIS
     Dosage: 5 MG, BID
  4. HEPARIN [Concomitant]
     Active Substance: HEPARIN SODIUM
  5. LOVENOX [Concomitant]
     Active Substance: ENOXAPARIN SODIUM
  6. PLAVIX [Suspect]
     Active Substance: CLOPIDOGREL BISULFATE
     Indication: THROMBOSIS
     Dosage: UNK
     Route: 048

REACTIONS (8)
  - Spider vein [Unknown]
  - Deep vein thrombosis [Unknown]
  - Skin irritation [Unknown]
  - Skin tightness [Unknown]
  - Pruritus [Unknown]
  - Sensitive skin [Unknown]
  - Limb discomfort [Unknown]
  - Cardiovascular disorder [Unknown]
